FAERS Safety Report 16735668 (Version 1)
Quarter: 2019Q4

REPORT INFORMATION
  Report Type: Spontaneous
  Country: US (occurrence: US)
  Receive Date: 20190823
  Receipt Date: 20190823
  Transmission Date: 20200122
  Serious: Yes (Other)
  Sender: FDA-Public Use
  Company Number: None

PATIENT
  Sex: Male

DRUGS (3)
  1. SUBOXONE [Suspect]
     Active Substance: BUPRENORPHINE HYDROCHLORIDE\NALOXONE HYDROCHLORIDE
     Indication: DRUG DEPENDENCE
     Route: 048
     Dates: start: 20190801, end: 20190823
  2. SUBOXONE [Suspect]
     Active Substance: BUPRENORPHINE HYDROCHLORIDE\NALOXONE HYDROCHLORIDE
     Dates: start: 20190802, end: 20190823
  3. BUPRENORPHINE NALOXONE 8-NG TABLETS [Suspect]
     Active Substance: BUPRENORPHINE\NALOXONE
     Dates: end: 20190801

REACTIONS (4)
  - Therapeutic response changed [None]
  - Drug dependence [None]
  - Drug ineffective [None]
  - Product solubility abnormal [None]

NARRATIVE: CASE EVENT DATE: 20190823
